FAERS Safety Report 4488147-5 (Version None)
Quarter: 2004Q4

REPORT INFORMATION
  Report Type: 
  Country: None (occurrence: None)
  Receive Date: 20041028
  Receipt Date: 20040916
  Transmission Date: 20050328
  Serious: Yes (Hospitalization, Disabling, Other)
  Sender: FDA-Public Use
  Company Number: GB-BRISTOL-MYERS SQUIBB COMPANY-12704003

PATIENT
  Age: 44 Year
  Sex: Male
  Weight: 75 kg

DRUGS (3)
  1. METHOTREXATE [Suspect]
     Indication: RHEUMATOID ARTHRITIS
     Route: 048
     Dates: start: 19930101
  2. MAXTREX [Suspect]
     Indication: RHEUMATOID ARTHRITIS
     Route: 048
     Dates: start: 19930101
  3. FOLIC ACID [Concomitant]
     Route: 048
     Dates: start: 19930101

REACTIONS (3)
  - CEREBROVASCULAR DISORDER [None]
  - EPILEPSY [None]
  - LUMBAR VERTEBRAL FRACTURE [None]
